FAERS Safety Report 20322098 (Version 1)
Quarter: 2022Q1

REPORT INFORMATION
  Report Type: Spontaneous
  Country: FR (occurrence: FR)
  Receive Date: 20220111
  Receipt Date: 20220111
  Transmission Date: 20220424
  Serious: Yes (Hospitalization)
  Sender: FDA-Public Use
  Company Number: None

PATIENT
  Age: 36 Year
  Sex: Female

DRUGS (1)
  1. LYRICA [Suspect]
     Active Substance: PREGABALIN
     Dosage: 16.8 G, 1X/DAY, 7 TO 14 DF/ INTAKE, UP TO 56 DF/DAY
     Route: 048

REACTIONS (4)
  - Drug abuse [Not Recovered/Not Resolved]
  - Overdose [Not Recovered/Not Resolved]
  - Hallucination [Recovered/Resolved]
  - Behaviour disorder [Recovered/Resolved]

NARRATIVE: CASE EVENT DATE: 20210731
